FAERS Safety Report 16828548 (Version 4)
Quarter: 2019Q4

REPORT INFORMATION
  Report Type: Spontaneous
  Country: FI (occurrence: FI)
  Receive Date: 20190919
  Receipt Date: 20191101
  Transmission Date: 20200122
  Serious: Yes (Other)
  Sender: FDA-Public Use
  Company Number: PHHY2019FI215639

PATIENT
  Age: 65 Year
  Sex: Female

DRUGS (3)
  1. OFTAQUIX [Concomitant]
     Active Substance: LEVOFLOXACIN
     Indication: PRODUCT USED FOR UNKNOWN INDICATION
     Dosage: UNK
     Route: 065
     Dates: start: 20190403, end: 201904
  2. NEVANAC [Suspect]
     Active Substance: NEPAFENAC
     Indication: POSTOPERATIVE CARE
     Dosage: UNK (04-APR-2019 (LEFT EYE), 11-APR-2019 (RIGHT EYE))
     Route: 047
     Dates: start: 20190404, end: 201904
  3. OFTAGEL [Concomitant]
     Active Substance: CARBOMER
     Indication: PRODUCT USED FOR UNKNOWN INDICATION
     Route: 065

REACTIONS (11)
  - Corneal oedema [Not Recovered/Not Resolved]
  - Headache [Unknown]
  - Corneal pigmentation [Unknown]
  - Foreign body sensation in eyes [Not Recovered/Not Resolved]
  - Ocular hyperaemia [Unknown]
  - Dry eye [Not Recovered/Not Resolved]
  - Contraindicated product prescribed [Unknown]
  - Corneal infection [Unknown]
  - Eye pain [Not Recovered/Not Resolved]
  - Corneal irritation [Unknown]
  - Intraocular pressure increased [Not Recovered/Not Resolved]

NARRATIVE: CASE EVENT DATE: 2019
